FAERS Safety Report 4487776-2 (Version None)
Quarter: 2004Q4

REPORT INFORMATION
  Report Type: 
  Country: None (occurrence: None)
  Receive Date: 20041028
  Receipt Date: 20040917
  Transmission Date: 20050328
  Serious: Yes (Hospitalization)
  Sender: FDA-Public Use
  Company Number: PHFR2004GB03550

PATIENT
  Age: 81 Year
  Sex: Male

DRUGS (5)
  1. GLEEVEC [Suspect]
     Indication: GASTROINTESTINAL STROMAL TUMOUR
     Dosage: 100 MG, QID
     Route: 048
     Dates: start: 20040902
  2. PARACETAMOL [Concomitant]
  3. OXYCODONE [Concomitant]
  4. FRUSEMIDE [Concomitant]
  5. METOCLOPRAMIDE [Concomitant]

REACTIONS (1)
  - MEDICAL DEVICE COMPLICATION [None]
